FAERS Safety Report 7051533-3 (Version None)
Quarter: 2010Q4

REPORT INFORMATION
  Report Type: 
  Country: None (occurrence: None)
  Receive Date: 20101019
  Receipt Date: 20101006
  Transmission Date: 20110411
  Serious: Yes (Hospitalization, Other)
  Sender: FDA-Public Use
  Company Number: PHHY2010US67419

PATIENT
  Sex: Male
  Weight: 66 kg

DRUGS (5)
  1. EXJADE [Suspect]
     Indication: SICKLE CELL ANAEMIA
     Dosage: 1500  MG DAILY
     Route: 048
     Dates: start: 20100715
  2. LISINOPRIL [Concomitant]
     Dosage: UNK
  3. FOLIC ACID [Concomitant]
     Dosage: UNK
  4. PERCOCET [Concomitant]
     Dosage: UNK
  5. PAROXETINE HCL [Concomitant]
     Dosage: UNK

REACTIONS (2)
  - HERNIA REPAIR [None]
  - TREATMENT NONCOMPLIANCE [None]
